FAERS Safety Report 8607124 (Version 4)
Quarter: 2014Q1

REPORT INFORMATION
  Report Type: Spontaneous
  Country: US (occurrence: US)
  Receive Date: 20120611
  Receipt Date: 20140129
  Transmission Date: 20141002
  Serious: Yes (Hospitalization, Disabling)
  Sender: FDA-Public Use
  Company Number: US-ASTRAZENECA-2012SE36229

PATIENT
  Age: 53 Year
  Sex: Female
  Weight: 92.1 kg

DRUGS (29)
  1. NEXIUM [Suspect]
     Indication: GASTROOESOPHAGEAL REFLUX DISEASE
     Dosage: ONCE IN DAY
     Route: 048
     Dates: start: 2000, end: 2013
  2. NEXIUM [Suspect]
     Indication: ULCER
     Dosage: ONCE IN DAY
     Route: 048
     Dates: start: 2000, end: 2013
  3. NEXIUM [Suspect]
     Indication: GASTROOESOPHAGEAL REFLUX DISEASE
     Route: 048
     Dates: start: 20051023
  4. NEXIUM [Suspect]
     Indication: ULCER
     Route: 048
     Dates: start: 20051023
  5. NEXIUM [Suspect]
     Indication: GASTROOESOPHAGEAL REFLUX DISEASE
     Route: 048
     Dates: start: 20100517
  6. NEXIUM [Suspect]
     Indication: ULCER
     Route: 048
     Dates: start: 20100517
  7. PRILOSEC [Suspect]
     Route: 048
  8. LISINOPRIL [Concomitant]
     Indication: HYPERTENSION
     Route: 048
     Dates: start: 20100517
  9. HYDROCHLOROTHI/HYDROCHLOROT [Concomitant]
     Route: 048
     Dates: start: 20101217
  10. PEPCID [Concomitant]
  11. PEPTO BISMOL [Concomitant]
  12. GAVISCON [Concomitant]
  13. TUMS [Concomitant]
  14. MILK OF MAGNESIA [Concomitant]
  15. MYLANTA [Concomitant]
  16. LEVEMIR [Concomitant]
     Indication: DIABETES MELLITUS
  17. NOVOLOG [Concomitant]
     Indication: DIABETES MELLITUS
  18. ZOCOR/SIMVASTATIN [Concomitant]
     Indication: HYPERCHOLESTEROLAEMIA
     Route: 048
     Dates: start: 20100517
  19. METFORMIN [Concomitant]
     Indication: DIABETES MELLITUS
  20. PREVACID [Concomitant]
  21. PROTONIX [Concomitant]
  22. TAGAMET [Concomitant]
  23. MELOXICAM [Concomitant]
     Dates: start: 20101221
  24. PAXIL [Concomitant]
     Dates: start: 20030215
  25. WELLBUTRIN SR [Concomitant]
     Dates: start: 20030225
  26. ZOLOFT [Concomitant]
  27. METOCLOPRAMIDE [Concomitant]
     Dates: start: 20060328
  28. AVANDIA [Concomitant]
     Dates: start: 20051229
  29. GLIPIZIDE [Concomitant]
     Dates: start: 20060224

REACTIONS (14)
  - Road traffic accident [Unknown]
  - Chest pain [Unknown]
  - Humerus fracture [Unknown]
  - Osteoporosis [Unknown]
  - Rib fracture [Unknown]
  - Foot fracture [Unknown]
  - Fall [Unknown]
  - Multiple fractures [Unknown]
  - Osteopenia [Unknown]
  - Panic attack [Unknown]
  - Anxiety [Unknown]
  - Lower limb fracture [Unknown]
  - Upper limb fracture [Unknown]
  - Depression [Unknown]
